FAERS Safety Report 22155557 (Version 1)
Quarter: 2023Q1

REPORT INFORMATION
  Report Type: Spontaneous
  Country: DE (occurrence: DE)
  Receive Date: 20230330
  Receipt Date: 20230330
  Transmission Date: 20230417
  Serious: Yes (Other)
  Sender: FDA-Public Use
  Company Number: DE-ABBVIE-4697003

PATIENT
  Age: 22 Year

DRUGS (1)
  1. ADALIMUMAB [Suspect]
     Active Substance: ADALIMUMAB
     Indication: Crohn^s disease
     Dosage: UNK
     Route: 058
     Dates: start: 202203

REACTIONS (5)
  - Drug-induced liver injury [Unknown]
  - Cholangitis [Unknown]
  - Hepatic cirrhosis [Unknown]
  - Inflammatory bowel disease [Unknown]
  - Hepatitis [Unknown]
